FAERS Safety Report 5774843-6 (Version None)
Quarter: 2008Q2

REPORT INFORMATION
  Report Type: 
  Country: None (occurrence: None)
  Receive Date: 20080612
  Receipt Date: 20080530
  Transmission Date: 20081010
  Serious: Yes (Hospitalization)
  Sender: FDA-Public Use
  Company Number: ABWVM-08-0200

PATIENT
  Age: 65 Year
  Sex: Female
  Weight: 59 kg

DRUGS (9)
  1. ABRAXANE [Suspect]
     Indication: BREAST CANCER
     Dosage: 3 DOSES PRIOR TO SAE
     Dates: start: 20080401, end: 20080501
  2. TRICOR [Concomitant]
  3. TOPROL-XL [Concomitant]
  4. ACCUPRIL [Concomitant]
  5. NEXIUM [Concomitant]
  6. LIPITOR [Concomitant]
  7. VITAMINS [Concomitant]
  8. GLIPIZIDE [Concomitant]
  9. REMERON [Concomitant]

REACTIONS (7)
  - ABDOMINAL DISTENSION [None]
  - CHILLS [None]
  - DYSARTHRIA [None]
  - FATIGUE [None]
  - LIVER DISORDER [None]
  - OVARIAN DISORDER [None]
  - PYREXIA [None]
